FAERS Safety Report 9165663 (Version 1)
Quarter: 2013Q1

REPORT INFORMATION
  Report Type: Spontaneous
  Country: US (occurrence: US)
  Receive Date: 20130315
  Receipt Date: 20130315
  Transmission Date: 20140127
  Serious: Yes (Hospitalization, Other)
  Sender: FDA-Public Use
  Company Number: US-SANOFI-AVENTIS-2013SA025540

PATIENT
  Age: 61 Year
  Sex: Male

DRUGS (1)
  1. LANTUS [Suspect]
     Indication: TYPE 2 DIABETES MELLITUS
     Dosage: TAKEN FROM: OVER 10 YEARS?FREQUENCY: NIGHTLY DOSE:80 UNIT(S)
     Route: 051

REACTIONS (5)
  - Transient ischaemic attack [Unknown]
  - Motor dysfunction [Unknown]
  - Hypoglycaemia [Unknown]
  - Blood glucose decreased [Unknown]
  - Glycosylated haemoglobin increased [Unknown]
